FAERS Safety Report 11425388 (Version 1)
Quarter: 2015Q3

REPORT INFORMATION
  Report Type: Spontaneous
  Country: US (occurrence: US)
  Receive Date: 20150821
  Receipt Date: 20150821
  Transmission Date: 20151125
  Serious: No
  Sender: FDA-Public Use
  Company Number: US-ELI_LILLY_AND_COMPANY-US201102002062

PATIENT
  Sex: Female

DRUGS (1)
  1. HUMULIN 70/30 [Suspect]
     Active Substance: INSULIN HUMAN
     Dosage: UNK, UNKNOWN
     Route: 065

REACTIONS (5)
  - Blood glucose increased [Unknown]
  - Eye disorder [Unknown]
  - Adverse drug reaction [Unknown]
  - Feeling abnormal [Unknown]
  - Sinus congestion [Unknown]
